FAERS Safety Report 9495969 (Version 1)
Quarter: 2013Q3

REPORT INFORMATION
  Report Type: Spontaneous
  Country: IT (occurrence: IT)
  Receive Date: 20130904
  Receipt Date: 20130904
  Transmission Date: 20140515
  Serious: Yes (Other)
  Sender: FDA-Public Use
  Company Number: IT-ABBOTT-13X-083-1141499-00

PATIENT
  Age: 47 Year
  Sex: Female
  Weight: 90 kg

DRUGS (6)
  1. DEPAKIN CHRONO [Suspect]
     Indication: SELF-INJURIOUS IDEATION
     Route: 048
  2. AKINETON [Suspect]
     Indication: SELF-INJURIOUS IDEATION
     Route: 048
     Dates: start: 20130722, end: 20130722
  3. HALDOL [Suspect]
     Indication: SELF-INJURIOUS IDEATION
     Route: 048
     Dates: start: 20130722, end: 20130722
  4. TAUXIB [Suspect]
     Indication: SELF-INJURIOUS IDEATION
     Route: 048
  5. ZYPREXA [Suspect]
     Indication: SELF-INJURIOUS IDEATION
     Route: 048
     Dates: start: 20130722, end: 20130722
  6. TAVOR [Suspect]
     Indication: SELF-INJURIOUS IDEATION
     Route: 048

REACTIONS (4)
  - Pain [Unknown]
  - Agitation [Unknown]
  - Coma [Unknown]
  - Overdose [Unknown]
